FAERS Safety Report 7986120-3 (Version None)
Quarter: 2011Q4

REPORT INFORMATION
  Report Type: 
  Country: None (occurrence: None)
  Receive Date: 20111216
  Receipt Date: 20111209
  Transmission Date: 20120403
  Serious: Yes (Hospitalization)
  Sender: FDA-Public Use
  Company Number: DE-TEVA-312747GER

PATIENT
  Sex: Female
  Weight: 68 kg

DRUGS (1)
  1. COTRIM DS [Suspect]
     Indication: URINARY TRACT INFECTION
     Dosage: 960 MILLIGRAM; 80 MG SULFAMETHOXAZOL + 160 MG TRIMETHOPRIM
     Route: 048

REACTIONS (1)
  - CIRCULATORY COLLAPSE [None]
